FAERS Safety Report 6712760-5 (Version None)
Quarter: 2010Q2

REPORT INFORMATION
  Report Type: 
  Country: None (occurrence: None)
  Receive Date: 20100505
  Receipt Date: 20100505
  Transmission Date: 20101027
  Serious: Yes (Hospitalization)
  Sender: FDA-Public Use
  Company Number: None

PATIENT
  Age: 62 Year
  Sex: Male
  Weight: 114.8 kg

DRUGS (1)
  1. DIVALPROEX SODIUM [Suspect]
     Indication: POST-TRAUMATIC STRESS DISORDER
     Dosage: 500 MG EVERY DAY PO
     Route: 048
     Dates: start: 20091103, end: 20091125

REACTIONS (7)
  - HEPATIC ENZYME INCREASED [None]
  - IGA NEPHROPATHY [None]
  - JOINT SWELLING [None]
  - LEUKOCYTOCLASTIC VASCULITIS [None]
  - LUPUS-LIKE SYNDROME [None]
  - PANCREATITIS [None]
  - THIRST [None]
